FAERS Safety Report 17952102 (Version 1)
Quarter: 2020Q2

REPORT INFORMATION
  Report Type: Spontaneous
  Country: IT (occurrence: IT)
  Receive Date: 20200626
  Receipt Date: 20200626
  Transmission Date: 20200714
  Serious: Yes (Hospitalization)
  Sender: FDA-Public Use
  Company Number: NVSC2020IT180057

PATIENT
  Age: 68 Year
  Sex: Female

DRUGS (2)
  1. HYDROXYCHLOROQUINE [Suspect]
     Active Substance: HYDROXYCHLOROQUINE
     Indication: SJOGREN^S SYNDROME
     Dosage: 200 MG, QD
     Route: 065
  2. PREDNISONE. [Suspect]
     Active Substance: PREDNISONE
     Indication: SJOGREN^S SYNDROME
     Dosage: 5 MG, QD
     Route: 065

REACTIONS (5)
  - Acute respiratory distress syndrome [Recovering/Resolving]
  - General physical health deterioration [Recovering/Resolving]
  - COVID-19 [Recovering/Resolving]
  - Product use in unapproved indication [Unknown]
  - Interstitial lung disease [Recovering/Resolving]
